FAERS Safety Report 10994584 (Version 1)
Quarter: 2015Q2

REPORT INFORMATION
  Report Type: Spontaneous
  Country: US (occurrence: US)
  Receive Date: 20150407
  Receipt Date: 20150407
  Transmission Date: 20150821
  Serious: Yes (Other)
  Sender: FDA-Public Use
  Company Number: US-BAYER-2015-087000

PATIENT
  Age: 36 Year
  Sex: Female

DRUGS (2)
  1. MIRENA [Suspect]
     Active Substance: LEVONORGESTREL
     Indication: CONTRACEPTION
     Dosage: 20 MCG/24HR, CONT
     Route: 015
     Dates: start: 201205, end: 20130327
  2. DIAMOX SEQUELS [Concomitant]
     Active Substance: ACETAZOLAMIDE

REACTIONS (9)
  - Injury [None]
  - Optic nerve injury [None]
  - Papilloedema [None]
  - Visual impairment [None]
  - Benign intracranial hypertension [None]
  - Blindness [None]
  - Pain [None]
  - Retinal haemorrhage [None]
  - Headache [None]

NARRATIVE: CASE EVENT DATE: 20121222
